FAERS Safety Report 7303192-X (Version None)
Quarter: 2011Q1

REPORT INFORMATION
  Report Type: 
  Country: None (occurrence: None)
  Receive Date: 20110221
  Receipt Date: 20110214
  Transmission Date: 20110831
  Serious: No
  Sender: FDA-Public Use
  Company Number: US-BIOGENIDEC-2011BI005587

PATIENT
  Age: 27 Year
  Sex: Female

DRUGS (2)
  1. VITAMIN D SUPPLEMENT [Concomitant]
     Indication: VITAMIN D DECREASED
  2. TYSABRI [Suspect]
     Indication: MULTIPLE SCLEROSIS
     Route: 042
     Dates: start: 20100608

REACTIONS (8)
  - FATIGUE [None]
  - CHEST PAIN [None]
  - URINARY INCONTINENCE [None]
  - HEADACHE [None]
  - PRURITUS [None]
  - ANAEMIA [None]
  - URINARY TRACT INFECTION [None]
  - VAGINAL INFECTION [None]
